FAERS Safety Report 12208037 (Version 1)
Quarter: 2016Q1

REPORT INFORMATION
  Report Type: Spontaneous
  Country: US (occurrence: US)
  Receive Date: 20160324
  Receipt Date: 20160324
  Transmission Date: 20160526
  Serious: Yes (Other)
  Sender: FDA-Public Use
  Company Number: US-BAYER-2016-052942

PATIENT
  Age: 84 Year
  Sex: Female

DRUGS (1)
  1. EOVIST [Suspect]
     Active Substance: GADOXETATE DISODIUM
     Dosage: 16 UNK, UNK
     Route: 042
     Dates: start: 20160315, end: 20160315

REACTIONS (3)
  - Memory impairment [None]
  - Tremor [None]
  - Respiration abnormal [None]

NARRATIVE: CASE EVENT DATE: 20160315
